FAERS Safety Report 20265827 (Version 1)
Quarter: 2021Q4

REPORT INFORMATION
  Report Type: Report from Study
  Country: GB (occurrence: GB)
  Receive Date: 20211231
  Receipt Date: 20211231
  Transmission Date: 20220303
  Serious: Yes (Other)
  Sender: FDA-Public Use
  Company Number: GB-NOVARTISPH-NVSC2021GB200678

PATIENT
  Age: 56 Year
  Sex: Female

DRUGS (1)
  1. HYRIMOZ [Suspect]
     Active Substance: ADALIMUMAB-ADAZ
     Indication: Crohn^s disease
     Dosage: 40 MG, QW
     Route: 065
     Dates: start: 20190704

REACTIONS (5)
  - Condition aggravated [Unknown]
  - Pain [Unknown]
  - Diarrhoea [Unknown]
  - Migraine [Unknown]
  - Injection site pain [Unknown]
